FAERS Safety Report 11682647 (Version 1)
Quarter: 2015Q4

REPORT INFORMATION
  Report Type: Spontaneous
  Country: FR (occurrence: FR)
  Receive Date: 20151029
  Receipt Date: 20151029
  Transmission Date: 20160304
  Serious: Yes (Hospitalization)
  Sender: FDA-Public Use
  Company Number: FR-PFIZER INC-2015359107

PATIENT
  Age: 19 Year
  Sex: Female

DRUGS (4)
  1. LARGACTIL /00011901/ [Suspect]
     Active Substance: CHLORPROMAZINE
     Dosage: 750 MG
     Route: 048
     Dates: start: 20150922, end: 20150922
  2. PRAZEPAM [Suspect]
     Active Substance: PRAZEPAM
     Dosage: UNK
     Route: 048
     Dates: end: 2015
  3. EFFEXOR LP [Suspect]
     Active Substance: VENLAFAXINE HYDROCHLORIDE
     Dosage: UNK
     Route: 048
     Dates: end: 2015
  4. ABILIFY [Suspect]
     Active Substance: ARIPIPRAZOLE
     Dosage: 1 DF, DAILY
     Route: 048
     Dates: end: 2015

REACTIONS (4)
  - Anticholinergic syndrome [Recovered/Resolved]
  - Tachycardia [Recovered/Resolved]
  - Somnolence [Recovered/Resolved]
  - Toxicity to various agents [Unknown]

NARRATIVE: CASE EVENT DATE: 20150922
